FAERS Safety Report 24284824 (Version 2)
Quarter: 2024Q3

REPORT INFORMATION
  Report Type: Spontaneous
  Country: PL (occurrence: PL)
  Receive Date: 20240905
  Receipt Date: 20240910
  Transmission Date: 20241016
  Serious: Yes (Other)
  Sender: REGENERON
  Company Number: PL-BAYER-2024A126045

PATIENT
  Age: 40 Year
  Sex: Male

DRUGS (2)
  1. EYLEA [Suspect]
     Active Substance: AFLIBERCEPT
     Indication: Retinal vein occlusion
     Dosage: UNK UNK, ONCE
     Route: 031
     Dates: start: 20240627, end: 20240627
  2. EYLEA [Suspect]
     Active Substance: AFLIBERCEPT
     Indication: Macular oedema
     Dosage: UNK, ONCE
     Route: 031

REACTIONS (5)
  - Purtscher retinopathy [Unknown]
  - Retinal ischaemia [Unknown]
  - Antiphospholipid syndrome [Unknown]
  - Retinal vascular thrombosis [Unknown]
  - Collagen disorder [Unknown]
